FAERS Safety Report 12322576 (Version 1)
Quarter: 2016Q2

REPORT INFORMATION
  Report Type: Spontaneous
  Country: US (occurrence: US)
  Receive Date: 20160502
  Receipt Date: 20160502
  Transmission Date: 20160815
  Serious: Yes (Other)
  Sender: FDA-Public Use
  Company Number: US-MDT-ADR-2016-00780

PATIENT
  Age: 58 Year
  Sex: Male

DRUGS (1)
  1. BACLOFEN. [Suspect]
     Active Substance: BACLOFEN
     Dosage: 319 MCG/DAY
     Route: 037

REACTIONS (12)
  - Fall [Unknown]
  - Blood pressure fluctuation [Unknown]
  - Underdose [Unknown]
  - Muscle spasticity [Unknown]
  - Prostate infection [Unknown]
  - Mental impairment [Unknown]
  - Unevaluable event [Unknown]
  - Burning sensation [Unknown]
  - Feeling abnormal [Unknown]
  - Abasia [Unknown]
  - Musculoskeletal stiffness [Unknown]
  - Chest pain [Unknown]

NARRATIVE: CASE EVENT DATE: 2016
